FAERS Safety Report 5625253-3 (Version None)
Quarter: 2008Q1

REPORT INFORMATION
  Report Type: 
  Country: None (occurrence: None)
  Receive Date: 20080213
  Receipt Date: 20080212
  Transmission Date: 20080703
  Serious: Yes (Other)
  Sender: FDA-Public Use
  Company Number: CA-MERCK-0802CAN00051

PATIENT
  Age: 86 Year
  Sex: Female

DRUGS (5)
  1. COZAAR [Suspect]
     Route: 048
  2. AMLODIPINE BESYLATE [Concomitant]
     Route: 065
  3. HYDROCHLOROTHIAZIDE [Concomitant]
     Route: 065
  4. ASPIRIN [Concomitant]
     Route: 065
  5. ACETAMINOPHEN [Concomitant]
     Route: 065

REACTIONS (3)
  - AMNESIA [None]
  - BLOOD CREATININE INCREASED [None]
  - CONFUSIONAL STATE [None]
